FAERS Safety Report 6280616-0 (Version None)
Quarter: 2009Q3

REPORT INFORMATION
  Report Type: 
  Country: None (occurrence: None)
  Receive Date: 20090724
  Receipt Date: 20081003
  Transmission Date: 20100115
  Serious: No
  Sender: FDA-Public Use
  Company Number: A0751236A

PATIENT
  Sex: Female
  Weight: 113.6 kg

DRUGS (1)
  1. AVANDIA [Suspect]
     Route: 048

REACTIONS (3)
  - CARDIAC DISORDER [None]
  - CHEST PAIN [None]
  - OEDEMA [None]
